FAERS Safety Report 9442568 (Version 1)
Quarter: 2013Q3

REPORT INFORMATION
  Report Type: Spontaneous
  Country: DE (occurrence: DE)
  Receive Date: 20130806
  Receipt Date: 20130806
  Transmission Date: 20140515
  Serious: Yes (Other)
  Sender: FDA-Public Use
  Company Number: DE-ROCHE-1256829

PATIENT
  Sex: Male

DRUGS (4)
  1. ROFERON-A [Suspect]
     Indication: BEHCET^S SYNDROME
     Dosage: DOSE: 3 MIO/ IU
     Route: 065
  2. ROFERON-A [Suspect]
     Indication: OFF LABEL USE
  3. TARDOCILLIN [Suspect]
     Indication: BEHCET^S SYNDROME
     Route: 065
  4. COLCHICINE [Suspect]
     Indication: BEHCET^S SYNDROME
     Route: 065

REACTIONS (2)
  - Behcet^s syndrome [Not Recovered/Not Resolved]
  - Blindness [Not Recovered/Not Resolved]
